FAERS Safety Report 4455089-0 (Version None)
Quarter: 2004Q3

REPORT INFORMATION
  Report Type: 
  Country: None (occurrence: None)
  Receive Date: 20040917
  Receipt Date: 20040909
  Transmission Date: 20050211
  Serious: Yes (Hospitalization)
  Sender: FDA-Public Use
  Company Number: 04H-163-0272879-00

PATIENT
  Age: 48 Year
  Sex: Female

DRUGS (1)
  1. MORPHINE SULFATE [Suspect]
     Indication: PAIN
     Dosage: 5 MG, INTRAVENOUS
     Route: 042

REACTIONS (3)
  - CHEST PAIN [None]
  - DYSPNOEA [None]
  - THROAT TIGHTNESS [None]
